FAERS Safety Report 4485231-7 (Version None)
Quarter: 2004Q4

REPORT INFORMATION
  Report Type: 
  Country: None (occurrence: None)
  Receive Date: 20041026
  Receipt Date: 20040727
  Transmission Date: 20050328
  Serious: No
  Sender: FDA-Public Use
  Company Number: US-BRISTOL-MYERS SQUIBB COMPANY-12651972

PATIENT
  Age: 44 Year
  Sex: Female
  Weight: 83 kg

DRUGS (7)
  1. GLUCOPHAGE XR [Suspect]
     Indication: HYPOGLYCAEMIA
     Dates: start: 20040601
  2. GLUCOPHAGE XR [Suspect]
     Indication: INSULIN RESISTANCE
     Dates: start: 20040601
  3. PRECOSE [Concomitant]
  4. SYNTHROID [Concomitant]
  5. YASMIN [Concomitant]
  6. ZYRTEC [Concomitant]
  7. SINGULAIR [Concomitant]

REACTIONS (3)
  - ABDOMINAL PAIN UPPER [None]
  - DIARRHOEA [None]
  - NAUSEA [None]
